FAERS Safety Report 12800885 (Version 1)
Quarter: 2016Q4

REPORT INFORMATION
  Report Type: Spontaneous
  Country: JP (occurrence: JP)
  Receive Date: 20161002
  Receipt Date: 20161002
  Transmission Date: 20170207
  Serious: Yes (Other)
  Sender: FDA-Public Use
  Company Number: PHJP2016JP027713

PATIENT
  Age: 64 Year
  Sex: Male

DRUGS (15)
  1. METHYLPREDNISOLON ORION [Concomitant]
     Dosage: 8 MG, QD
     Route: 065
  2. METHYLPREDNISOLON ORION [Concomitant]
     Dosage: 4 MG, QD
     Route: 065
     Dates: start: 201203
  3. CERTICAN [Suspect]
     Active Substance: EVEROLIMUS
     Dosage: 0.5 MG, QD
     Route: 048
     Dates: start: 201208
  4. NEORAL [Suspect]
     Active Substance: CYCLOSPORINE
     Dosage: 20 MG, QD
     Route: 048
     Dates: start: 201203
  5. CELLCEPT [Concomitant]
     Active Substance: MYCOPHENOLATE MOFETIL\MYCOPHENOLATE MOFETIL HYDROCHLORIDE
     Dosage: 500 MG, QD
     Route: 065
  6. CERTICAN [Suspect]
     Active Substance: EVEROLIMUS
     Dosage: 1 MG, QD
     Route: 048
     Dates: start: 201204
  7. NEORAL [Suspect]
     Active Substance: CYCLOSPORINE
     Dosage: 50 MG, QD
     Route: 048
     Dates: start: 201202
  8. METHYLPREDNISOLON ORION [Concomitant]
     Dosage: 1 MG, QD
     Route: 065
     Dates: start: 201204
  9. CELLCEPT [Concomitant]
     Active Substance: MYCOPHENOLATE MOFETIL\MYCOPHENOLATE MOFETIL HYDROCHLORIDE
     Dosage: 250 MG, QD
     Route: 065
  10. CELLCEPT [Concomitant]
     Active Substance: MYCOPHENOLATE MOFETIL\MYCOPHENOLATE MOFETIL HYDROCHLORIDE
     Indication: PRODUCT USED FOR UNKNOWN INDICATION
     Dosage: 750 MG, QD
     Route: 065
  11. CERTICAN [Suspect]
     Active Substance: EVEROLIMUS
     Indication: RENAL TRANSPLANT
     Dosage: 1.5 MG, BID
     Route: 048
     Dates: start: 201203
  12. NEORAL [Suspect]
     Active Substance: CYCLOSPORINE
     Indication: RENAL TRANSPLANT
     Dosage: UNK
     Route: 048
     Dates: start: 201111
  13. METHYLPREDNISOLON ORION [Concomitant]
     Dosage: 2 MG, QD
     Route: 065
  14. NEORAL [Suspect]
     Active Substance: CYCLOSPORINE
     Dosage: 80 MG, QD
     Route: 048
     Dates: start: 201201
  15. METHYLPREDNISOLON ORION [Concomitant]
     Indication: PRODUCT USED FOR UNKNOWN INDICATION
     Dosage: 8 MG, QD
     Route: 065

REACTIONS (2)
  - Chronic allograft nephropathy [Unknown]
  - Stomatitis [Unknown]
